FAERS Safety Report 5820333-1 (Version None)
Quarter: 2008Q3

REPORT INFORMATION
  Report Type: 
  Country: None (occurrence: None)
  Receive Date: 20080724
  Receipt Date: 20070607
  Transmission Date: 20090109
  Serious: No
  Sender: FDA-Public Use
  Company Number: A0654623A

PATIENT
  Age: 58 Year
  Sex: Female

DRUGS (8)
  1. AVANDIA [Suspect]
     Dosage: 4MG PER DAY
     Route: 048
     Dates: start: 20020101, end: 20070529
  2. GLUCOTROL XL [Concomitant]
  3. NORVASC [Concomitant]
  4. ALLEGRA [Concomitant]
  5. HYZAAR [Concomitant]
  6. BENTYL [Concomitant]
  7. NAPROSYN [Concomitant]
  8. ZOCOR [Concomitant]

REACTIONS (1)
  - BLOOD GLUCOSE DECREASED [None]
